FAERS Safety Report 7537906-0 (Version None)
Quarter: 2011Q2

REPORT INFORMATION
  Report Type: 
  Country: None (occurrence: None)
  Receive Date: 20110609
  Receipt Date: 20110606
  Transmission Date: 20111010
  Serious: Yes (Other)
  Sender: FDA-Public Use
  Company Number: US-AMGEN-USASP2010005634

PATIENT
  Age: 63 Year
  Sex: Female
  Weight: 107.94 kg

DRUGS (17)
  1. VITAMIN E                          /00110501/ [Concomitant]
     Dosage: 400 IU, QD
  2. MYCOSTATIN                         /00036501/ [Concomitant]
     Dosage: 5 ML, Q6H
  3. ULTRAM [Concomitant]
     Dosage: 50 MG, Q6H
  4. NPLATE [Suspect]
     Dates: start: 20100607, end: 20100607
  5. CORTICOSTEROIDS [Concomitant]
     Indication: IDIOPATHIC THROMBOCYTOPENIC PURPURA
  6. VITAMIN C                          /00008001/ [Concomitant]
     Dosage: 100 MG, UNK
  7. CRANBERRY                          /01512301/ [Concomitant]
     Dosage: 400 MG, BID
  8. NPLATE [Suspect]
     Indication: IDIOPATHIC THROMBOCYTOPENIC PURPURA
     Dosage: 1.4 A?G/KG, UNK
     Dates: start: 20100607, end: 20100607
  9. VITAMIN A [Concomitant]
     Dosage: 400 IU, QD
  10. ZANTAC                             /00550801/ [Concomitant]
     Dosage: 150 MG, QD
  11. VITAMIN B COMPLEX                  /00003501/ [Concomitant]
     Dosage: UNK UNK, QD
  12. LONOX [Concomitant]
     Dosage: 5 MG, PRN
  13. ATIVAN [Concomitant]
     Dosage: 2 MG, Q6H
  14. POTASSIUM GLUCONATE TAB [Concomitant]
     Dosage: 550 MG, QD
  15. ZESTRIL [Concomitant]
     Dosage: 10 MG, QD
  16. MULTIVITAMIN                       /00097801/ [Concomitant]
     Dosage: UNK UNK, QD
  17. SYNTHROID [Concomitant]
     Dosage: 100 A?G, QD

REACTIONS (2)
  - DRUG INEFFECTIVE [None]
  - THROMBOCYTOPENIA [None]
